FAERS Safety Report 6231610-7 (Version None)
Quarter: 2009Q2

REPORT INFORMATION
  Report Type: 
  Country: None (occurrence: None)
  Receive Date: 20090612
  Receipt Date: 20090612
  Transmission Date: 20091009
  Serious: Yes (Other)
  Sender: FDA-Public Use
  Company Number: None

PATIENT
  Age: 25 Year
  Sex: Female
  Weight: 63.5036 kg

DRUGS (2)
  1. BUTALBITAL/ASPIRIN/CAFFEINE DOES NOT STATE ON BOTTLE LANNETT [Suspect]
     Indication: HEADACHE
     Dosage: DOES NOT STATE ON BOTTLE EVERY 4-6 HOURS PO
     Route: 048
     Dates: start: 20090608, end: 20090608
  2. BUTALBITAL/ASPIRIN/CAFFEINE DOES NOT STATE ON BOTTLE LANNETT [Suspect]
     Indication: MIGRAINE
     Dosage: DOES NOT STATE ON BOTTLE EVERY 4-6 HOURS PO
     Route: 048
     Dates: start: 20090608, end: 20090608

REACTIONS (2)
  - ABDOMINAL PAIN UPPER [None]
  - GASTROINTESTINAL HAEMORRHAGE [None]
